FAERS Safety Report 14631861 (Version 2)
Quarter: 2018Q2

REPORT INFORMATION
  Report Type: Spontaneous
  Country: JP (occurrence: JP)
  Receive Date: 20180313
  Receipt Date: 20180405
  Transmission Date: 20180711
  Serious: Yes (Hospitalization, Other)
  Sender: FDA-Public Use
  Company Number: JP-REGENERON PHARMACEUTICALS, INC.-2018-16932

PATIENT

DRUGS (16)
  1. EYLEA [Suspect]
     Active Substance: AFLIBERCEPT
     Dosage: 2 MG, ONCE
     Route: 031
     Dates: start: 20170512, end: 20170512
  2. EYLEA [Suspect]
     Active Substance: AFLIBERCEPT
     Dosage: 2 MG, ONCE  LEFT EYE
     Route: 031
     Dates: start: 20170929, end: 20170929
  3. CRAVIT [Concomitant]
     Active Substance: LEVOFLOXACIN
     Dosage: QID LEFT EYE
     Route: 031
     Dates: start: 20161019, end: 20161031
  4. DIAMOX                             /00016901/ [Concomitant]
     Active Substance: ACETAZOLAMIDE
     Dosage: 250 MG, QD
     Route: 048
     Dates: start: 20161129
  5. ALESION [Concomitant]
     Active Substance: EPINASTINE HYDROCHLORIDE
     Indication: PRODUCT USED FOR UNKNOWN INDICATION
     Route: 031
  6. EYLEA [Suspect]
     Active Substance: AFLIBERCEPT
     Dosage: 2 MG, ONCE
     Route: 031
     Dates: start: 20161129, end: 20161129
  7. ALESION [Concomitant]
     Active Substance: EPINASTINE HYDROCHLORIDE
     Route: 031
  8. CRAVIT [Concomitant]
     Active Substance: LEVOFLOXACIN
     Indication: PRODUCT USED FOR UNKNOWN INDICATION
     Dosage: QID LEFT EYE
     Route: 031
     Dates: start: 20160920, end: 20161003
  9. CRAVIT [Concomitant]
     Active Substance: LEVOFLOXACIN
     Dosage: QID LEFT EYE
     Route: 031
     Dates: start: 20161122, end: 20161205
  10. DIAMOX                             /00016901/ [Concomitant]
     Active Substance: ACETAZOLAMIDE
     Indication: PROPHYLAXIS
     Dosage: 250 MG, QD
     Route: 048
     Dates: start: 20160927, end: 20161024
  11. EYLEA [Suspect]
     Active Substance: AFLIBERCEPT
     Indication: AGE-RELATED MACULAR DEGENERATION
     Dosage: 2 MG, ONCE LEFT EYE
     Route: 031
     Dates: start: 20160927, end: 20160927
  12. EYLEA [Suspect]
     Active Substance: AFLIBERCEPT
     Dosage: 2 MG, ONCE
     Route: 031
     Dates: start: 20161025, end: 20161025
  13. EYLEA [Suspect]
     Active Substance: AFLIBERCEPT
     Dosage: 2 MG, ONCE
     Route: 031
     Dates: start: 20170721, end: 20170721
  14. EYLEA [Suspect]
     Active Substance: AFLIBERCEPT
     Dosage: 2 MG, ONCE
     Route: 031
     Dates: start: 20170303, end: 20170303
  15. EYLEA [Suspect]
     Active Substance: AFLIBERCEPT
     Dosage: 2 MG, ONCE
     Route: 031
     Dates: start: 20171208, end: 20171208
  16. DIAMOX                             /00016901/ [Concomitant]
     Active Substance: ACETAZOLAMIDE
     Dosage: 250 MG, QD
     Route: 048
     Dates: start: 20161025, end: 20161128

REACTIONS (1)
  - Liver abscess [Recovered/Resolved]

NARRATIVE: CASE EVENT DATE: 20180210
